FAERS Safety Report 8513171-2 (Version None)
Quarter: 2012Q3

REPORT INFORMATION
  Report Type: 
  Country: None (occurrence: None)
  Receive Date: 20120716
  Receipt Date: 20120710
  Transmission Date: 20120928
  Serious: Yes (Death)
  Sender: FDA-Public Use
  Company Number: US-PFIZER INC-2012151913

PATIENT
  Sex: Female

DRUGS (4)
  1. REVATIO [Suspect]
     Indication: PULMONARY ARTERIAL HYPERTENSION
     Dosage: 20 MG, 3X/DAY
     Route: 048
     Dates: start: 20120324
  2. DILTIAZEM [Concomitant]
     Dosage: 180 MG, 1X/DAY
  3. NAC DIAGNOSTIC REAGENT [Concomitant]
     Indication: PULMONARY FIBROSIS
     Dosage: 60 MG, 3X/DAY
     Dates: start: 20120201, end: 20120101
  4. FUROSEMIDE [Concomitant]
     Indication: FLUID OVERLOAD
     Dosage: 20 MG, 1X/DAY
     Dates: start: 20111201, end: 20120101

REACTIONS (2)
  - PULMONARY FIBROSIS [None]
  - PULMONARY HYPERTENSION [None]
